FAERS Safety Report 7691852-0 (Version None)
Quarter: 2011Q3

REPORT INFORMATION
  Report Type: 
  Country: None (occurrence: None)
  Receive Date: 20110815
  Receipt Date: 20110803
  Transmission Date: 20111222
  Serious: Yes (Hospitalization, Other)
  Sender: FDA-Public Use
  Company Number: 120896

PATIENT
  Age: 52 Year
  Sex: Female

DRUGS (1)
  1. METHOTREXATE [Suspect]
     Indication: RHEUMATOID ARTHRITIS
     Dosage: 50MG IM
     Route: 030

REACTIONS (20)
  - LEUKOPENIA [None]
  - FEBRILE NEUTROPENIA [None]
  - ALANINE AMINOTRANSFERASE INCREASED [None]
  - BLOOD CREATININE INCREASED [None]
  - PYREXIA [None]
  - RED BLOOD CELL SEDIMENTATION RATE INCREASED [None]
  - ASPARTATE AMINOTRANSFERASE INCREASED [None]
  - NAUSEA [None]
  - MEDICATION ERROR [None]
  - MOUTH ULCERATION [None]
  - BLOOD UREA INCREASED [None]
  - BLOOD PRESSURE INCREASED [None]
  - ACCIDENTAL OVERDOSE [None]
  - ABDOMINAL TENDERNESS [None]
  - C-REACTIVE PROTEIN INCREASED [None]
  - DIARRHOEA HAEMORRHAGIC [None]
  - HAEMOGLOBIN DECREASED [None]
  - TOXICITY TO VARIOUS AGENTS [None]
  - VOMITING [None]
  - ORAL PAIN [None]
